FAERS Safety Report 19061034 (Version 1)
Quarter: 2021Q1

REPORT INFORMATION
  Report Type: Report from Study
  Country: US (occurrence: US)
  Receive Date: 20210325
  Receipt Date: 20210325
  Transmission Date: 20210420
  Serious: Yes (Hospitalization, Other)
  Sender: FDA-Public Use
  Company Number: US-BRISTOL-MYERS SQUIBB COMPANY-BMS-2021-027719

PATIENT
  Age: 73 Year
  Sex: Male
  Weight: 100.8 kg

DRUGS (1)
  1. NIVOLUMAB [Suspect]
     Active Substance: NIVOLUMAB
     Indication: PANCREATIC CARCINOMA
     Dosage: 240 MG INFUSION OVER 30 MIN, Q2WK
     Route: 042
     Dates: start: 20200511, end: 20210112

REACTIONS (3)
  - Sepsis [Unknown]
  - Cholangitis [Unknown]
  - Infection [Unknown]

NARRATIVE: CASE EVENT DATE: 20210309
